FAERS Safety Report 7753142-7 (Version None)
Quarter: 2011Q3

REPORT INFORMATION
  Report Type: 
  Country: None (occurrence: None)
  Receive Date: 20110915
  Receipt Date: 20110912
  Transmission Date: 20111222
  Serious: Yes (Other)
  Sender: FDA-Public Use
  Company Number: US-PFIZER INC-2011163900

PATIENT
  Sex: Female
  Weight: 122.45 kg

DRUGS (6)
  1. NAPROXEN [Concomitant]
     Dosage: UNK
  2. COVERA-HS [Concomitant]
     Dosage: UNK
  3. VIMPAT [Concomitant]
     Dosage: UNK
  4. LYRICA [Suspect]
     Indication: EPILEPSY
     Dosage: 100 MG, 2X/DAY
     Route: 048
     Dates: start: 20110701
  5. LYRICA [Suspect]
     Indication: CONVULSION
  6. TRILEPTAL [Concomitant]
     Dosage: UNK

REACTIONS (3)
  - OEDEMA PERIPHERAL [None]
  - CHEST DISCOMFORT [None]
  - MUSCULOSKELETAL DISCOMFORT [None]
